FAERS Safety Report 4726473-2 (Version None)
Quarter: 2005Q3

REPORT INFORMATION
  Report Type: 
  Country: None (occurrence: None)
  Receive Date: 20050726
  Receipt Date: 20050718
  Transmission Date: 20060218
  Serious: Yes (Death)
  Sender: FDA-Public Use
  Company Number: 200510446BNE

PATIENT
  Sex: Male

DRUGS (12)
  1. CIPROFLOXACIN [Suspect]
     Dosage: 250 MG, BID
  2. CLOTRIMAZOLE [Suspect]
  3. SPIRIVA [Suspect]
     Dosage: 18 UG, TOTAL DAILY, RESPIRATORY (INHALATION)
     Route: 055
  4. COMBIVENT [Suspect]
     Dosage: 2.5 ML, QID, RESPIRATORY (INHALATION)
     Route: 055
  5. SERETIDE [Suspect]
     Dosage: BID, RESPIRATORY (INHALATION)
     Route: 055
  6. SODIUM CHLORIDE [Suspect]
  7. PREDNISOLONE [Suspect]
     Dosage: 30 MG, TOTAL DAILY
  8. AMLODIPINE [Suspect]
     Dosage: 10 MG, TOTAL DAILY
  9. TRIMETHOPRIM [Suspect]
     Dosage: 200 MG, BID
  10. FUROSEMIDE [Suspect]
     Dosage: 40 MG, OM
  11. INSTILLAGEL (LIDOCAINE HYDROCHLORIDE) [Suspect]
     Dosage: 11 MG, TOTAL DAILY
  12. DOUBLEBASE GEL (ISOPROPYL MYRISTATE) [Suspect]
     Dosage: PRN

REACTIONS (2)
  - CARDIAC FAILURE CONGESTIVE [None]
  - CHRONIC OBSTRUCTIVE PULMONARY DISEASE [None]
